FAERS Safety Report 4267518-6 (Version None)
Quarter: 2004Q1

REPORT INFORMATION
  Report Type: 
  Country: None (occurrence: None)
  Receive Date: 20040109
  Receipt Date: 20030722
  Transmission Date: 20041129
  Serious: No
  Sender: FDA-Public Use
  Company Number: US-GLAXOSMITHKLINE-A0418606A

PATIENT
  Age: 27 Year
  Sex: Male

DRUGS (1)
  1. WELLBUTRIN [Suspect]
     Indication: DEPRESSION
     Route: 048
     Dates: start: 20000317, end: 20000101

REACTIONS (5)
  - DEPRESSION [None]
  - STRESS SYMPTOMS [None]
  - SWELLING FACE [None]
  - TENSION [None]
  - WEIGHT INCREASED [None]
